FAERS Safety Report 21669786 (Version 1)
Quarter: 2022Q4

REPORT INFORMATION
  Report Type: Report from Study
  Country: US (occurrence: US)
  Receive Date: 20221201
  Receipt Date: 20221201
  Transmission Date: 20230113
  Serious: Yes (Death, Other)
  Sender: FDA-Public Use
  Company Number: US-GILEAD-2022-0604288

PATIENT
  Age: 93 Year
  Sex: Female

DRUGS (16)
  1. IDELALISIB [Suspect]
     Active Substance: IDELALISIB
     Indication: Chronic lymphocytic leukaemia
     Dosage: 100 MG, QD
     Route: 048
     Dates: start: 20220607
  2. ALPHA LIPOIC ACID [Concomitant]
     Active Substance: .ALPHA.-LIPOIC ACID
  3. AMLODIPINE [Concomitant]
     Active Substance: AMLODIPINE BESYLATE
  4. CIPROFLOXACIN [Concomitant]
     Active Substance: CIPROFLOXACIN
  5. DICLOFENAC [Concomitant]
     Active Substance: DICLOFENAC
  6. FLUOXETINE [Concomitant]
     Active Substance: FLUOXETINE HYDROCHLORIDE
  7. HYDRALAZINE [Concomitant]
     Active Substance: HYDRALAZINE HYDROCHLORIDE
  8. HYDROCHLOROTHIAZIDE [Concomitant]
     Active Substance: HYDROCHLOROTHIAZIDE
  9. KEFLEX [Concomitant]
     Active Substance: CEPHALEXIN
  10. LEVOTHYROXINE [Concomitant]
     Active Substance: LEVOTHYROXINE
  11. LOSARTAN [Concomitant]
     Active Substance: LOSARTAN
  12. OMEPRAZOLE [Concomitant]
     Active Substance: OMEPRAZOLE
  13. SUCRALFATE [Concomitant]
     Active Substance: SUCRALFATE
  14. TRAMADOL [Concomitant]
     Active Substance: TRAMADOL
  15. VALIUM [Concomitant]
     Active Substance: DIAZEPAM
  16. VALSARTAN [Concomitant]
     Active Substance: VALSARTAN

REACTIONS (3)
  - Death [Fatal]
  - Diarrhoea [Not Recovered/Not Resolved]
  - Off label use [Not Recovered/Not Resolved]

NARRATIVE: CASE EVENT DATE: 20220607
